FAERS Safety Report 12470612 (Version 2)
Quarter: 2017Q3

REPORT INFORMATION
  Report Type: Spontaneous
  Country: JP (occurrence: JP)
  Receive Date: 20160616
  Receipt Date: 20170725
  Transmission Date: 20171127
  Serious: Yes (Hospitalization)
  Sender: FDA-Public Use
  Company Number: JP-SUN PHARMACEUTICAL INDUSTRIES LTD-2016R1-117989

PATIENT
  Age: 57 Year
  Sex: Male

DRUGS (9)
  1. PYRAZINAMIDE. [Concomitant]
     Active Substance: PYRAZINAMIDE
     Indication: TUBERCULOSIS
     Dosage: 1.2 G, DAILY
     Route: 065
  2. ISONIAZID. [Suspect]
     Active Substance: ISONIAZID
     Dosage: 25 MG, DAILY
     Route: 065
  3. ISONIAZID. [Suspect]
     Active Substance: ISONIAZID
     Dosage: 300 MG, DAILY
     Route: 065
  4. ISONIAZID. [Suspect]
     Active Substance: ISONIAZID
     Indication: TUBERCULOSIS
     Dosage: 0.3 G, DAILY
     Route: 065
  5. ETHAMBUTOL [Concomitant]
     Active Substance: ETHAMBUTOL HYDROCHLORIDE
     Indication: TUBERCULOSIS
     Dosage: 0.75 G, DAILY
     Route: 065
  6. ISONIAZID. [Suspect]
     Active Substance: ISONIAZID
     Dosage: 200 MG, DAILY
     Route: 065
  7. RIFAMPICIN [Concomitant]
     Active Substance: RIFAMPIN
     Indication: TUBERCULOSIS
     Dosage: 0.45 G, DAILY
     Route: 065
  8. ISONIAZID. [Suspect]
     Active Substance: ISONIAZID
     Dosage: 50 MG, DAILY
     Route: 065
  9. ISONIAZID. [Suspect]
     Active Substance: ISONIAZID
     Dosage: 100 MG, DAILY
     Route: 065

REACTIONS (1)
  - Alveolitis allergic [Recovered/Resolved]
